FAERS Safety Report 9199168 (Version 1)
Quarter: 2013Q1

REPORT INFORMATION
  Report Type: Spontaneous
  Country: GB (occurrence: None)
  Receive Date: 20130326
  Receipt Date: 20130326
  Transmission Date: 20140127
  Serious: Yes (Other)
  Sender: FDA-Public Use
  Company Number: 2013-05341

PATIENT
  Age: 38 Year
  Sex: Female

DRUGS (1)
  1. IBUPROFEN (IBUPROFEN) [Suspect]
     Indication: DYSMENORRHOEA
     Route: 048
     Dates: start: 2009

REACTIONS (2)
  - Pain [None]
  - Condition aggravated [None]
